FAERS Safety Report 10257599 (Version 1)
Quarter: 2014Q2

REPORT INFORMATION
  Report Type: Report from Study
  Country: US (occurrence: US)
  Receive Date: 20140625
  Receipt Date: 20140625
  Transmission Date: 20141212
  Serious: Yes (Hospitalization)
  Sender: FDA-Public Use
  Company Number: PHEH2014US012515

PATIENT
  Age: 19 Year
  Sex: Male

DRUGS (1)
  1. CLOZARIL [Suspect]
     Dosage: UNK

REACTIONS (2)
  - Mental disorder [Unknown]
  - White blood cell count increased [Unknown]
